FAERS Safety Report 21409739 (Version 9)
Quarter: 2024Q2

REPORT INFORMATION
  Report Type: Spontaneous
  Country: IT (occurrence: IT)
  Receive Date: 20221005
  Receipt Date: 20240617
  Transmission Date: 20240715
  Serious: Yes (Hospitalization, Disabling, Other)
  Sender: FDA-Public Use
  Company Number: IT-CELLTRION HEALTHCARE HUNGARY KFT-2022IT014989

PATIENT
  Age: 58 Year
  Sex: Male

DRUGS (12)
  1. LEUPROLIDE ACETATE [Suspect]
     Active Substance: ISOPROPYL ALCOHOL\LEUPROLIDE ACETATE
     Indication: Extramammary Paget^s disease
     Dosage: 11.25 MILLIGRAM
     Route: 030
     Dates: start: 201906, end: 201908
  2. GEMCITABINE [Suspect]
     Active Substance: GEMCITABINE
     Indication: Extramammary Paget^s disease
     Dosage: 800 MILLIGRAM, Q3WEEKS
     Route: 065
     Dates: start: 201910
  3. GEMCITABINE [Suspect]
     Active Substance: GEMCITABINE
     Indication: Extramammary Paget^s disease
     Route: 065
     Dates: start: 201908
  4. PACLITAXEL [Suspect]
     Active Substance: PACLITAXEL
     Indication: Extramammary Paget^s disease
     Dosage: UNK UNK, Q3WEEKS
     Route: 065
     Dates: end: 201605
  5. CARBOPLATIN [Suspect]
     Active Substance: CARBOPLATIN
     Indication: Extramammary Paget^s disease
     Dosage: UNK UNK, Q3WEEKS
     Route: 065
     Dates: start: 201601, end: 201605
  6. TRASTUZUMAB [Suspect]
     Active Substance: TRASTUZUMAB
     Indication: Extramammary Paget^s disease
     Dosage: UNK
     Route: 042
     Dates: end: 201910
  7. TRASTUZUMAB [Suspect]
     Active Substance: TRASTUZUMAB
     Indication: Extramammary Paget^s disease
     Dosage: UNK, Q3WEEKS
     Route: 042
  8. TRASTUZUMAB [Suspect]
     Active Substance: TRASTUZUMAB
     Indication: Extramammary Paget^s disease
     Route: 042
     Dates: start: 201601
  9. BICALUTAMIDE [Suspect]
     Active Substance: BICALUTAMIDE
     Indication: Extramammary Paget^s disease
     Dosage: 50 MILLIGRAM, QD
     Route: 048
     Dates: start: 201906, end: 201908
  10. VINORELBINE [Suspect]
     Active Substance: VINORELBINE TARTRATE
     Indication: Extramammary Paget^s disease
     Dosage: 150 MILLIGRAM, 1/WEEK
     Route: 048
     Dates: start: 201808
  11. VINORELBINE [Suspect]
     Active Substance: VINORELBINE TARTRATE
     Indication: Extramammary Paget^s disease
     Dosage: 90 MILLIGRAM, 1/WEEK
     Route: 048
     Dates: start: 201901, end: 201905
  12. TRASTUZUMAB [Concomitant]
     Active Substance: TRASTUZUMAB
     Indication: Product used for unknown indication
     Dosage: UNK
     Dates: start: 201601, end: 2019

REACTIONS (14)
  - Mobility decreased [Unknown]
  - Asthenia [Unknown]
  - Febrile neutropenia [Unknown]
  - Disease progression [Unknown]
  - Off label use [Recovered/Resolved]
  - Drug effective for unapproved indication [Unknown]
  - Fatigue [Unknown]
  - Drug ineffective for unapproved indication [Recovered/Resolved]
  - Anaemia [Unknown]
  - Walking disability [Unknown]
  - Drug intolerance [Unknown]
  - Extramammary Paget^s disease [Unknown]
  - Product use issue [Unknown]
  - Gait disturbance [Unknown]

NARRATIVE: CASE EVENT DATE: 20190601
